FAERS Safety Report 23197781 (Version 1)
Quarter: 2023Q4

REPORT INFORMATION
  Report Type: Spontaneous
  Country: US (occurrence: US)
  Receive Date: 20231117
  Receipt Date: 20231117
  Transmission Date: 20240110
  Serious: Yes (Other)
  Sender: FDA-Public Use
  Company Number: US-HORIZON THERAPEUTICS-HZN-2023-009133

PATIENT

DRUGS (88)
  1. RAVICTI [Suspect]
     Active Substance: GLYCEROL PHENYLBUTYRATE
     Indication: Urea cycle disorder
     Dosage: 2.1 ML, FIRST DOSE
     Route: 048
     Dates: start: 20220412, end: 20220412
  2. RAVICTI [Suspect]
     Active Substance: GLYCEROL PHENYLBUTYRATE
     Dosage: 2.8 ML
     Route: 048
     Dates: start: 20220413, end: 20220417
  3. RAVICTI [Suspect]
     Active Substance: GLYCEROL PHENYLBUTYRATE
     Dosage: 3.5 ML
     Route: 048
     Dates: start: 20220418, end: 20220418
  4. RAVICTI [Suspect]
     Active Substance: GLYCEROL PHENYLBUTYRATE
     Dosage: 4.2 ML
     Route: 048
     Dates: start: 20220419, end: 20220419
  5. RAVICTI [Suspect]
     Active Substance: GLYCEROL PHENYLBUTYRATE
     Dosage: 2.8 ML
     Route: 048
     Dates: start: 20220420, end: 20220424
  6. RAVICTI [Suspect]
     Active Substance: GLYCEROL PHENYLBUTYRATE
     Dosage: 3.5 ML
     Route: 048
     Dates: start: 20220425, end: 20220426
  7. RAVICTI [Suspect]
     Active Substance: GLYCEROL PHENYLBUTYRATE
     Dosage: 2.4 ML
     Route: 048
     Dates: start: 20220427, end: 20220518
  8. RAVICTI [Suspect]
     Active Substance: GLYCEROL PHENYLBUTYRATE
     Dosage: 2.2 ML
     Route: 048
     Dates: start: 20220519, end: 20220601
  9. RAVICTI [Suspect]
     Active Substance: GLYCEROL PHENYLBUTYRATE
     Dosage: 2.4 ML
     Route: 048
     Dates: start: 20220602, end: 20220620
  10. RAVICTI [Suspect]
     Active Substance: GLYCEROL PHENYLBUTYRATE
     Dosage: 2.7 ML
     Route: 048
     Dates: start: 20220621, end: 20220704
  11. RAVICTI [Suspect]
     Active Substance: GLYCEROL PHENYLBUTYRATE
     Dosage: 3 ML
     Route: 048
     Dates: start: 20220705, end: 20220720
  12. RAVICTI [Suspect]
     Active Substance: GLYCEROL PHENYLBUTYRATE
     Dosage: 3.3 ML
     Route: 048
     Dates: start: 20220721, end: 20220727
  13. KEPPRA [Suspect]
     Active Substance: LEVETIRACETAM
     Indication: Seizure
     Dosage: UNK
     Route: 065
     Dates: start: 20220519, end: 20220614
  14. KEPPRA [Suspect]
     Active Substance: LEVETIRACETAM
     Dosage: UNK
     Route: 065
     Dates: start: 20220614, end: 20220623
  15. KEPPRA [Suspect]
     Active Substance: LEVETIRACETAM
     Dosage: UNK
     Route: 065
     Dates: start: 20220726, end: 20220728
  16. ZINC OXIDE [Concomitant]
     Active Substance: ZINC OXIDE
     Indication: Dermatitis diaper
     Dosage: UNK
     Route: 065
     Dates: start: 20220519, end: 20220623
  17. ZINC OXIDE [Concomitant]
     Active Substance: ZINC OXIDE
     Dosage: UNK
     Route: 065
     Dates: start: 20220726, end: 20220728
  18. GLYCERIN [Concomitant]
     Active Substance: GLYCERIN
     Indication: Constipation
     Dosage: UNK
     Route: 065
     Dates: start: 20220413, end: 20220427
  19. ATROPINE [Concomitant]
     Active Substance: ATROPINE\ATROPINE SULFATE
     Indication: Cardiac failure acute
     Dosage: UNK
     Route: 065
     Dates: start: 20220413, end: 20220419
  20. GLUCAGON [Concomitant]
     Active Substance: GLUCAGON\GLUCAGON HYDROCHLORIDE\WATER
     Indication: Hypoglycaemia
     Dosage: UNK
     Route: 065
     Dates: start: 20220413, end: 20220414
  21. GLUCAGON [Concomitant]
     Active Substance: GLUCAGON\GLUCAGON HYDROCHLORIDE\WATER
     Dosage: UNK
     Route: 065
     Dates: start: 20220726, end: 20220728
  22. SODIUM PHENYLACETATE [Concomitant]
     Active Substance: SODIUM PHENYLACETATE
     Indication: Hyperammonaemia
     Dosage: UNK
     Route: 065
     Dates: start: 20220414, end: 20220416
  23. CITRULLINE [Concomitant]
     Active Substance: CITRULLINE
     Indication: Ornithine transcarbamoylase deficiency
     Dosage: UNK
     Route: 065
     Dates: start: 20220413, end: 20220414
  24. CITRULLINE [Concomitant]
     Active Substance: CITRULLINE
     Dosage: UNK
     Route: 065
     Dates: start: 20220414, end: 20220420
  25. CITRULLINE [Concomitant]
     Active Substance: CITRULLINE
     Dosage: UNK
     Route: 065
     Dates: start: 20220420, end: 20220420
  26. CITRULLINE [Concomitant]
     Active Substance: CITRULLINE
     Dosage: UNK
     Route: 065
     Dates: start: 20220420, end: 20220425
  27. CITRULLINE [Concomitant]
     Active Substance: CITRULLINE
     Dosage: UNK
     Route: 065
     Dates: start: 20220425, end: 20220426
  28. CITRULLINE [Concomitant]
     Active Substance: CITRULLINE
     Dosage: UNK
     Route: 065
     Dates: start: 20220426, end: 20220429
  29. CITRULLINE [Concomitant]
     Active Substance: CITRULLINE
     Dosage: UNK
     Route: 065
     Dates: start: 20220518, end: 20220609
  30. CITRULLINE [Concomitant]
     Active Substance: CITRULLINE
     Dosage: UNK
     Route: 065
     Dates: start: 20220609, end: 20220617
  31. CITRULLINE [Concomitant]
     Active Substance: CITRULLINE
     Dosage: UNK
     Route: 065
     Dates: start: 20220617, end: 20220623
  32. CITRULLINE [Concomitant]
     Active Substance: CITRULLINE
     Dosage: UNK
     Route: 065
     Dates: start: 20220726, end: 20220728
  33. FERROUS SULFATE [Concomitant]
     Active Substance: FERROUS SULFATE
     Indication: Iron deficiency
     Dosage: UNK
     Route: 065
     Dates: start: 20220421, end: 20220429
  34. FERROUS SULFATE [Concomitant]
     Active Substance: FERROUS SULFATE
     Dosage: UNK
     Route: 065
     Dates: start: 20220518, end: 20220606
  35. FERROUS SULFATE [Concomitant]
     Active Substance: FERROUS SULFATE
     Dosage: UNK
     Route: 065
     Dates: start: 20220614, end: 20220623
  36. FERROUS SULFATE [Concomitant]
     Active Substance: FERROUS SULFATE
     Dosage: UNK
     Route: 065
     Dates: start: 20220726, end: 20220728
  37. EPINEPHRINE [Concomitant]
     Active Substance: EPINEPHRINE
     Indication: Cardiac failure acute
     Dosage: UNK
     Route: 065
     Dates: start: 20220413, end: 20220427
  38. ARGININE HYDROCHLORIDE [Concomitant]
     Active Substance: ARGININE HYDROCHLORIDE
     Indication: Hyperammonaemia
     Dosage: UNK
     Route: 065
     Dates: start: 20220513, end: 20220515
  39. ARGININE HYDROCHLORIDE [Concomitant]
     Active Substance: ARGININE HYDROCHLORIDE
     Dosage: UNK
     Route: 065
     Dates: start: 20220526, end: 20220527
  40. ARGININE HYDROCHLORIDE [Concomitant]
     Active Substance: ARGININE HYDROCHLORIDE
     Dosage: UNK
     Route: 065
     Dates: start: 20220527, end: 20220529
  41. LMX 4 [Concomitant]
     Indication: Pain
     Dosage: UNK
     Route: 065
     Dates: start: 20220518, end: 20220610
  42. LMX 4 [Concomitant]
     Dosage: UNK
     Route: 065
     Dates: start: 20220726, end: 20220728
  43. PHENOBARBITAL [Concomitant]
     Active Substance: PHENOBARBITAL
     Indication: Seizure
     Dosage: UNK
     Route: 065
     Dates: start: 20220413, end: 20220427
  44. PHENOBARBITAL [Concomitant]
     Active Substance: PHENOBARBITAL
     Dosage: UNK
     Route: 065
     Dates: start: 20220428, end: 20220429
  45. PHENOBARBITAL [Concomitant]
     Active Substance: PHENOBARBITAL
     Dosage: UNK
     Route: 065
     Dates: start: 20220518, end: 20220522
  46. PHENOBARBITAL [Concomitant]
     Active Substance: PHENOBARBITAL
     Dosage: UNK
     Route: 065
     Dates: start: 20220522, end: 20220525
  47. PHENOBARBITAL [Concomitant]
     Active Substance: PHENOBARBITAL
     Dosage: UNK
     Route: 065
     Dates: start: 20220526, end: 20220530
  48. EPOETIN ALFA [Concomitant]
     Active Substance: ERYTHROPOIETIN
     Indication: Anaemia
     Dosage: UNK
     Route: 065
     Dates: start: 20220415, end: 20220427
  49. EPOETIN ALFA [Concomitant]
     Active Substance: ERYTHROPOIETIN
     Dosage: UNK
     Route: 065
     Dates: start: 20220429, end: 20220429
  50. EPOETIN ALFA [Concomitant]
     Active Substance: ERYTHROPOIETIN
     Dosage: UNK
     Route: 065
     Dates: start: 20220518, end: 20220527
  51. EPOETIN ALFA [Concomitant]
     Active Substance: ERYTHROPOIETIN
     Dosage: UNK
     Route: 065
     Dates: start: 20220527, end: 20220602
  52. EPOETIN ALFA [Concomitant]
     Active Substance: ERYTHROPOIETIN
     Dosage: UNK
     Route: 065
     Dates: start: 20220602, end: 20220615
  53. EPOETIN ALFA [Concomitant]
     Active Substance: ERYTHROPOIETIN
     Dosage: UNK
     Route: 065
     Dates: start: 20220615, end: 20220623
  54. EPOETIN ALFA [Concomitant]
     Active Substance: ERYTHROPOIETIN
     Dosage: UNK
     Route: 065
     Dates: start: 20220726, end: 20220728
  55. EPOETIN ALFA [Concomitant]
     Active Substance: ERYTHROPOIETIN
     Dosage: UNK
  56. AMMONUL [Concomitant]
     Active Substance: SODIUM BENZOATE\SODIUM PHENYLACETATE
     Indication: Hyperammonaemia
     Dosage: UNK
     Route: 065
     Dates: start: 20220413, end: 20220416
  57. AMMONUL [Concomitant]
     Active Substance: SODIUM BENZOATE\SODIUM PHENYLACETATE
     Dosage: UNK
     Route: 065
     Dates: start: 20220426, end: 20220426
  58. AMMONUL [Concomitant]
     Active Substance: SODIUM BENZOATE\SODIUM PHENYLACETATE
     Dosage: UNK
     Route: 065
     Dates: start: 20220427, end: 20220427
  59. AMMONUL [Concomitant]
     Active Substance: SODIUM BENZOATE\SODIUM PHENYLACETATE
     Dosage: UNK
     Route: 065
     Dates: start: 20220427, end: 20220428
  60. AMMONUL [Concomitant]
     Active Substance: SODIUM BENZOATE\SODIUM PHENYLACETATE
     Dosage: UNK
     Route: 065
     Dates: start: 20220428, end: 20220429
  61. DIURIL [Concomitant]
     Active Substance: CHLOROTHIAZIDE
     Indication: Polyuria
     Dosage: UNK
     Route: 065
     Dates: start: 20220413, end: 20220417
  62. DIURIL [Concomitant]
     Active Substance: CHLOROTHIAZIDE
     Dosage: UNK
     Route: 065
     Dates: start: 20220417, end: 20220429
  63. DIURIL [Concomitant]
     Active Substance: CHLOROTHIAZIDE
     Dosage: UNK
     Route: 065
     Dates: start: 20220518, end: 20220520
  64. DIURIL [Concomitant]
     Active Substance: CHLOROTHIAZIDE
     Dosage: UNK
     Route: 065
     Dates: start: 20220520, end: 20220610
  65. DIURIL [Concomitant]
     Active Substance: CHLOROTHIAZIDE
     Dosage: UNK
     Route: 065
     Dates: start: 20220610, end: 20220614
  66. DIURIL [Concomitant]
     Active Substance: CHLOROTHIAZIDE
     Dosage: UNK
     Route: 065
     Dates: start: 20220614, end: 20220616
  67. DIURIL [Concomitant]
     Active Substance: CHLOROTHIAZIDE
     Dosage: UNK
     Route: 065
     Dates: start: 20220616, end: 20220620
  68. DIURIL [Concomitant]
     Active Substance: CHLOROTHIAZIDE
     Dosage: UNK
     Route: 065
     Dates: start: 20220620, end: 20220623
  69. DIURIL [Concomitant]
     Active Substance: CHLOROTHIAZIDE
     Dosage: UNK
     Route: 065
     Dates: start: 20220726, end: 20220727
  70. DIURIL [Concomitant]
     Active Substance: CHLOROTHIAZIDE
     Dosage: UNK
     Route: 065
     Dates: start: 20220727, end: 20220728
  71. HEPARIN SODIUM [Concomitant]
     Active Substance: HEPARIN SODIUM
     Indication: Product used for unknown indication
     Dosage: UNK
     Route: 065
     Dates: start: 20220413, end: 20220417
  72. HEPARIN SODIUM [Concomitant]
     Active Substance: HEPARIN SODIUM
     Dosage: UNK
     Route: 065
     Dates: start: 20220417, end: 20220427
  73. HEPARIN SODIUM [Concomitant]
     Active Substance: HEPARIN SODIUM
     Dosage: UNK
     Route: 065
     Dates: start: 20220519, end: 20220623
  74. HEPARIN SODIUM [Concomitant]
     Active Substance: HEPARIN SODIUM
     Dosage: UNK
     Route: 065
     Dates: start: 20220726, end: 20220726
  75. HEPARIN SODIUM [Concomitant]
     Active Substance: HEPARIN SODIUM
     Dosage: UNK
     Route: 065
     Dates: start: 20220727, end: 20220728
  76. BACITRACIN [Concomitant]
     Active Substance: BACITRACIN
     Indication: Product used for unknown indication
     Dosage: UNK
     Route: 065
     Dates: start: 20220613, end: 20220623
  77. PROGLYCEM [Concomitant]
     Active Substance: DIAZOXIDE
     Indication: Hypoglycaemia
     Dosage: UNK
     Route: 065
     Dates: start: 20220413, end: 20220415
  78. PROGLYCEM [Concomitant]
     Active Substance: DIAZOXIDE
     Dosage: UNK
     Route: 065
     Dates: start: 20220415, end: 20220417
  79. PROGLYCEM [Concomitant]
     Active Substance: DIAZOXIDE
     Dosage: UNK
     Route: 065
     Dates: start: 20220417, end: 20220429
  80. PROGLYCEM [Concomitant]
     Active Substance: DIAZOXIDE
     Dosage: UNK
     Route: 065
     Dates: start: 20220518, end: 20220520
  81. PROGLYCEM [Concomitant]
     Active Substance: DIAZOXIDE
     Dosage: UNK
     Route: 065
     Dates: start: 20220520, end: 20220523
  82. PROGLYCEM [Concomitant]
     Active Substance: DIAZOXIDE
     Dosage: UNK
     Route: 065
     Dates: start: 20220523, end: 20220610
  83. PROGLYCEM [Concomitant]
     Active Substance: DIAZOXIDE
     Dosage: UNK
     Route: 065
     Dates: start: 20220616, end: 20220620
  84. PROGLYCEM [Concomitant]
     Active Substance: DIAZOXIDE
     Dosage: UNK
     Route: 065
     Dates: start: 20220620, end: 20220623
  85. PROGLYCEM [Concomitant]
     Active Substance: DIAZOXIDE
     Dosage: UNK
     Route: 065
     Dates: start: 20220726, end: 20220727
  86. PROGLYCEM [Concomitant]
     Active Substance: DIAZOXIDE
     Dosage: UNK
     Route: 065
     Dates: start: 20220727, end: 20220728
  87. HEPARIN SODIUM [Concomitant]
     Active Substance: HEPARIN SODIUM
     Indication: Product used for unknown indication
     Dosage: UNK
     Route: 065
     Dates: start: 20220413, end: 20220414
  88. HEPARIN SODIUM [Concomitant]
     Active Substance: HEPARIN SODIUM
     Dosage: UNK
     Route: 065
     Dates: start: 20220414, end: 20220417

REACTIONS (1)
  - Myelosuppression [Recovered/Resolved]

NARRATIVE: CASE EVENT DATE: 20220621
